FAERS Safety Report 17103153 (Version 2)
Quarter: 2020Q1

REPORT INFORMATION
  Report Type: Spontaneous
  Country: BR (occurrence: BR)
  Receive Date: 20191203
  Receipt Date: 20200205
  Transmission Date: 20200409
  Serious: Yes (Other)
  Sender: FDA-Public Use
  Company Number: BR-AMGEN-BRASP2019199317

PATIENT
  Age: 82 Year
  Sex: Male

DRUGS (1)
  1. ENBREL [Suspect]
     Active Substance: ETANERCEPT
     Indication: PRODUCT USED FOR UNKNOWN INDICATION
     Dosage: UNK
     Route: 065
     Dates: start: 20090515

REACTIONS (5)
  - Excessive cerumen production [Unknown]
  - Otorrhoea [Unknown]
  - Skin cancer [Unknown]
  - Deafness bilateral [Recovered/Resolved]
  - Ear infection [Recovered/Resolved]
